FAERS Safety Report 10431729 (Version 1)
Quarter: 2014Q3

REPORT INFORMATION
  Report Type: Spontaneous
  Country: US (occurrence: US)
  Receive Date: 20140904
  Receipt Date: 20140904
  Transmission Date: 20150326
  Serious: No
  Sender: FDA-Public Use
  Company Number: US-ELI_LILLY_AND_COMPANY-US201409000697

PATIENT
  Age: 70 Year
  Sex: Female

DRUGS (8)
  1. BUSPAR [Concomitant]
     Active Substance: BUSPIRONE HYDROCHLORIDE
  2. KLONOPIN [Concomitant]
     Active Substance: CLONAZEPAM
  3. PAXIL [Concomitant]
     Active Substance: PAROXETINE HYDROCHLORIDE
  4. PIROXICAM. [Concomitant]
     Active Substance: PIROXICAM
  5. TRAZODONE [Concomitant]
     Active Substance: TRAZODONE HYDROCHLORIDE
  6. COLACE [Concomitant]
     Active Substance: DOCUSATE SODIUM
  7. FORTEO [Suspect]
     Active Substance: TERIPARATIDE
     Indication: PRODUCT USED FOR UNKNOWN INDICATION
     Dosage: UNK, UNKNOWN
     Route: 065
     Dates: start: 20140705, end: 20140810
  8. LIDODERM [Concomitant]
     Active Substance: LIDOCAINE

REACTIONS (9)
  - Sinusitis [Unknown]
  - Nausea [Unknown]
  - Pain in jaw [Unknown]
  - Nervousness [Unknown]
  - Hot flush [Unknown]
  - Vertigo [Recovered/Resolved]
  - Gait disturbance [Unknown]
  - Hyperhidrosis [Unknown]
  - Headache [Recovering/Resolving]
